FAERS Safety Report 9381623 (Version 1)
Quarter: 2013Q3

REPORT INFORMATION
  Report Type: Spontaneous
  Country: BR (occurrence: BR)
  Receive Date: 20130703
  Receipt Date: 20130703
  Transmission Date: 20140515
  Serious: Yes (Other)
  Sender: FDA-Public Use
  Company Number: BR-PFIZER INC-2013194111

PATIENT
  Sex: Female

DRUGS (1)
  1. SOMAVERT [Suspect]
     Dosage: 10 MG, 1X/DAY
     Route: 058

REACTIONS (1)
  - Nodule [Unknown]
